FAERS Safety Report 10011845 (Version 3)
Quarter: 2014Q2

REPORT INFORMATION
  Report Type: Report from Study
  Country: BR (occurrence: BR)
  Receive Date: 20140314
  Receipt Date: 20140523
  Transmission Date: 20141212
  Serious: Yes (Hospitalization, Other)
  Sender: FDA-Public Use
  Company Number: PHHY2014BR030532

PATIENT
  Age: 76 Year
  Sex: Male
  Weight: 95 kg

DRUGS (12)
  1. TRILEPTAL [Suspect]
     Indication: NERVOUS SYSTEM DISORDER
     Dosage: 600 MG (IN THE MORNING AND IN THE NIGHT)
     Route: 048
     Dates: start: 201401
  2. TRILEPTAL [Suspect]
     Indication: CEREBRAL THROMBOSIS
     Dosage: 300 MG, BID (IN THE MORNING AND IN THE NIGHT)
  3. TRILEPTAL [Suspect]
     Indication: OFF LABEL USE
     Dosage: 300 MG, TID
  4. AMYTRIL [Concomitant]
     Indication: DEMENTIA ALZHEIMER^S TYPE
     Dosage: 25 MG, 2 YEARS AGO
  5. STILNOX [Concomitant]
     Indication: SLEEP DISORDER
     Dosage: 10 MG, UNK
     Dates: end: 20140309
  6. LOSARTAN [Concomitant]
     Indication: BLOOD PRESSURE ABNORMAL
     Dosage: 50 MG, UNK
  7. METFORMIN [Concomitant]
     Indication: DIABETES MELLITUS
     Dosage: 850 MG, UNK
  8. NATRILIX [Concomitant]
     Indication: BLOOD PRESSURE ABNORMAL
     Dosage: 1.5 MG, UNK
  9. ROXFLAN [Concomitant]
     Indication: BLOOD PRESSURE
     Dosage: 10 MG, UNK
  10. SIMVASTATIN [Concomitant]
     Indication: BLOOD CHOLESTEROL ABNORMAL
     Dosage: 20 MG, UNK
  11. OMEPRAZOLE [Concomitant]
     Indication: GASTRIC DISORDER
     Dosage: 20 MG, UNK
  12. GLIMEPIRIDE [Concomitant]
     Indication: DIABETES MELLITUS
     Dosage: 4 MG, UNK

REACTIONS (4)
  - Tremor [Recovering/Resolving]
  - Convulsion [Unknown]
  - Bradyphrenia [Unknown]
  - Malaise [Unknown]
